FAERS Safety Report 26202484 (Version 1)
Quarter: 2025Q4

REPORT INFORMATION
  Report Type: Spontaneous
  Country: US (occurrence: US)
  Receive Date: 20251226
  Receipt Date: 20251226
  Transmission Date: 20260117
  Serious: No
  Sender: BRISTOL-MYERS SQUIBB COMPANY
  Company Number: US-BRISTOL-MYERS SQUIBB COMPANY-2025-172692

PATIENT
  Age: 38 Year
  Sex: Male

DRUGS (2)
  1. ORENCIA [Suspect]
     Active Substance: ABATACEPT
     Indication: Rheumatoid arthritis
     Route: 058
     Dates: start: 202210
  2. KEVZARA [Concomitant]
     Active Substance: SARILUMAB
     Indication: Product used for unknown indication

REACTIONS (8)
  - Pain [Unknown]
  - Chills [Unknown]
  - Cold sweat [Unknown]
  - Fatigue [Unknown]
  - Influenza like illness [Unknown]
  - Lethargy [Unknown]
  - Hyperhidrosis [Unknown]
  - Drug ineffective [Unknown]
